FAERS Safety Report 7725898-0 (Version None)
Quarter: 2011Q3

REPORT INFORMATION
  Report Type: 
  Country: None (occurrence: None)
  Receive Date: 20110902
  Receipt Date: 20110830
  Transmission Date: 20111222
  Serious: Yes (Death, Hospitalization)
  Sender: FDA-Public Use
  Company Number: US-JNJFOC-20110603596

PATIENT
  Sex: Male
  Weight: 70.99 kg

DRUGS (25)
  1. JEVTANA KIT [Suspect]
     Indication: CHEMOTHERAPY
     Route: 042
     Dates: start: 20110207
  2. JEVTANA KIT [Suspect]
     Route: 042
     Dates: start: 20110321
  3. CENTRUM SILVER [Concomitant]
     Route: 048
  4. JEVTANA KIT [Suspect]
     Route: 042
     Dates: start: 20110411
  5. JEVTANA KIT [Suspect]
     Route: 042
     Dates: start: 20110523
  6. COLACE [Concomitant]
     Route: 048
  7. LIDODERM [Concomitant]
     Route: 065
  8. ZYTIGA [Suspect]
     Indication: PROSTATE CANCER METASTATIC
     Route: 048
     Dates: start: 20110518, end: 20110605
  9. LYRICA [Concomitant]
     Route: 048
  10. ASPIRIN [Concomitant]
     Route: 048
  11. JEVTANA KIT [Suspect]
     Route: 042
     Dates: start: 20110503
  12. PREDNISONE [Concomitant]
     Indication: PROSTATE CANCER METASTATIC
     Route: 048
  13. AMBIEN [Concomitant]
     Route: 048
  14. CALCIUM CARBONATE [Concomitant]
     Route: 048
  15. OXYCONTIN [Concomitant]
     Route: 048
  16. OXYCONTIN [Concomitant]
     Route: 048
  17. ZOLADEX [Concomitant]
     Route: 058
  18. POTASSIUM CHLORIDE [Concomitant]
     Route: 048
  19. BACTRIM DS [Concomitant]
     Dosage: 800 MG - 160 MG
     Route: 048
  20. DECADRON [Concomitant]
     Dosage: Q 6
     Route: 042
  21. JEVTANA KIT [Suspect]
     Route: 042
     Dates: start: 20110228
  22. LYRICA [Concomitant]
     Route: 048
  23. COUMADIN [Concomitant]
     Route: 048
  24. MIRALAX [Concomitant]
     Route: 048
  25. OXYCODONE HCL [Concomitant]
     Indication: PAIN
     Dosage: AS NEEDED
     Route: 048

REACTIONS (9)
  - ALANINE AMINOTRANSFERASE INCREASED [None]
  - ASPARTATE AMINOTRANSFERASE INCREASED [None]
  - URINARY TRACT INFECTION [None]
  - BLOOD BILIRUBIN INCREASED [None]
  - PLEURAL EFFUSION [None]
  - ANAEMIA [None]
  - BLOOD ALKALINE PHOSPHATASE DECREASED [None]
  - PANCYTOPENIA [None]
  - PROSTATE CANCER [None]
